FAERS Safety Report 4276915-4 (Version None)
Quarter: 2004Q1

REPORT INFORMATION
  Report Type: 
  Country: None (occurrence: None)
  Receive Date: 20040120
  Receipt Date: 20040105
  Transmission Date: 20041129
  Serious: Yes (Hospitalization, Other)
  Sender: FDA-Public Use
  Company Number: 2004000634

PATIENT
  Age: 75 Year
  Sex: Male
  Weight: 86.1834 kg

DRUGS (9)
  1. VIAGRA [Suspect]
     Indication: ERECTILE DYSFUNCTION
     Dosage: ORAL
     Route: 048
     Dates: start: 20020101
  2. CARVEDILOL [Concomitant]
  3. ROSIGLITAZONE MALEATE (ROSIGLITAZONE MALEATE) [Concomitant]
  4. FOSINOPRIL SODIUM [Concomitant]
  5. FUROSEMIDE [Concomitant]
  6. SPIRONOLACTONE [Concomitant]
  7. THYROID TAB [Concomitant]
  8. ACETYLSALICYLIC ACID SRT [Concomitant]
  9. TAMSULOSIN HYDROCHLORIDE (TAMSULOSIN HYDROCHLORIDE) [Concomitant]

REACTIONS (6)
  - CHOLECYSTECTOMY [None]
  - DRUG INEFFECTIVE [None]
  - PHARMACEUTICAL PRODUCT COMPLAINT [None]
  - PYREXIA [None]
  - RENAL VESSEL DISORDER [None]
  - VASCULAR OCCLUSION [None]
